FAERS Safety Report 17220391 (Version 2)
Quarter: 2020Q4

REPORT INFORMATION
  Report Type: Spontaneous
  Country: DE (occurrence: DE)
  Receive Date: 20191231
  Receipt Date: 20201228
  Transmission Date: 20210113
  Serious: Yes (Other)
  Sender: FDA-Public Use
  Company Number: DE-NAPPMUNDI-GBR-2019-0074042

PATIENT
  Age: 89 Year
  Sex: Female

DRUGS (21)
  1. OXYCONTIN [Interacting]
     Active Substance: OXYCODONE HYDROCHLORIDE
     Indication: PAIN
     Dosage: UNK
     Route: 065
  2. DUROGESIC [Concomitant]
     Active Substance: FENTANYL
     Dosage: 12.5 MCG, [UNK (12.5 MICROGRAM, GIVEN AT A LOW DOSE)]
  3. HALOPERIDOL. [Concomitant]
     Active Substance: HALOPERIDOL
     Dosage: UNK (ONE DOSE)
     Route: 065
  4. CEFEPIME [Concomitant]
     Active Substance: CEFEPIME HYDROCHLORIDE
     Dosage: 500 MG, UNK (TWO TIMES, DOSE-ADJUSTED BASED ON KIDNEY FUNCTION)
     Route: 042
  5. MYDOCALM                           /00293002/ [Interacting]
     Active Substance: TOLPERISONE HYDROCHLORIDE
     Indication: PAIN
     Dosage: 450 MILLIGRAM
     Route: 048
  6. MYDOCALM                           /00293002/ [Interacting]
     Active Substance: TOLPERISONE HYDROCHLORIDE
     Dosage: 450 MG, UNK
  7. QUETIAPINE FUMARATE. [Suspect]
     Active Substance: QUETIAPINE FUMARATE
     Indication: DEPRESSION
     Dosage: UNK (INCREASED CONTINUOUSLY)
     Route: 065
  8. DIAZEPAM. [Concomitant]
     Active Substance: DIAZEPAM
     Dosage: 5 MG, DAILY (5 MG, SEVERAL TIMES DAILY AS NEEDED)
     Route: 054
  9. DUROGESIC [Concomitant]
     Active Substance: FENTANYL
     Indication: PAIN
     Dosage: UNK (12.5 MICROGRAM, GIVEN AT A LOW DOSE)
     Route: 065
  10. DAFALGAN [Concomitant]
     Active Substance: ACETAMINOPHEN
     Indication: PAIN
     Dosage: UNK
     Route: 042
  11. OXYCONTIN [Suspect]
     Active Substance: OXYCODONE HYDROCHLORIDE
     Indication: PAIN
     Dosage: UNK
     Route: 065
  12. NOVALGIN (METAMIZOLE SODIUM) [Concomitant]
     Active Substance: METAMIZOLE SODIUM
     Indication: PAIN
     Dosage: UNK (2.5 G AT 2-4 ML/H, 2.5-5 G OVER 24H)
     Route: 042
  13. MEPERIDINE                         /00016301/ [Suspect]
     Active Substance: MEPERIDINE
     Indication: PAIN
     Dosage: UNK (TOTAL VOLUME OF 400-800 MG)
     Route: 042
  14. PETHIDINE HYDROCHLORIDE [Suspect]
     Active Substance: MEPERIDINE HYDROCHLORIDE
     Indication: PAIN
     Dosage: UNK (TOTAL VOLUME OF 400-800 MG)
     Route: 042
  15. CIPRAMIL                           /00582602/ [Suspect]
     Active Substance: CITALOPRAM HYDROBROMIDE
     Indication: DEPRESSION
     Dosage: UNK
     Route: 065
  16. MONURIL [Concomitant]
     Active Substance: FOSFOMYCIN TROMETHAMINE
     Indication: ESCHERICHIA INFECTION
     Dosage: 3 G, UNK (SINGLE DOSE OF 3 G)
     Route: 065
  17. MONURIL [Concomitant]
     Active Substance: FOSFOMYCIN TROMETHAMINE
     Dosage: 3 G, SINGLE [SINGLE DOSE OF 3 G)]
  18. MIRTAZAPINE. [Interacting]
     Active Substance: MIRTAZAPINE
     Indication: DEPRESSION
     Dosage: UNK
     Route: 065
  19. MAGNESIUM W/POTASSIUM [Concomitant]
     Indication: HYPOKALAEMIA
     Dosage: UNK
     Route: 065
  20. LORAZEPAM. [Suspect]
     Active Substance: LORAZEPAM
     Indication: DEPRESSION
     Dosage: UNK
     Route: 065
  21. HALOPERIDOL. [Concomitant]
     Active Substance: HALOPERIDOL
     Dosage: UNK, SINGLE [(ONE DOSE]
     Route: 065

REACTIONS (4)
  - Fall [Recovering/Resolving]
  - Drug interaction [Recovering/Resolving]
  - Serotonin syndrome [Recovering/Resolving]
  - Pelvic fracture [Recovering/Resolving]

NARRATIVE: CASE EVENT DATE: 201512
